FAERS Safety Report 23085109 (Version 3)
Quarter: 2023Q4

REPORT INFORMATION
  Report Type: Report from Study
  Country: US (occurrence: US)
  Receive Date: 20231019
  Receipt Date: 20231222
  Transmission Date: 20240109
  Serious: Yes (Other)
  Sender: FDA-Public Use
  Company Number: US-MALLINCKRODT-MNK202304950

PATIENT
  Age: 55 Year
  Sex: Male

DRUGS (3)
  1. CORTICOTROPIN [Suspect]
     Active Substance: CORTICOTROPIN
     Indication: Uveitis
     Dosage: 80 UNITS
     Dates: start: 20230309
  2. VITAMIN B [Concomitant]
     Active Substance: VITAMIN B
     Indication: Product used for unknown indication
     Dosage: UNKNOWN
  3. HUMIRA [Concomitant]
     Active Substance: ADALIMUMAB
     Indication: Product used for unknown indication
     Dosage: UNKNOWN

REACTIONS (4)
  - Glycosylated haemoglobin increased [Unknown]
  - Upper respiratory tract infection [Recovered/Resolved]
  - Vitamin D increased [Not Recovered/Not Resolved]
  - Rosacea [Recovering/Resolving]

NARRATIVE: CASE EVENT DATE: 20230101
